FAERS Safety Report 5818243-9 (Version None)
Quarter: 2008Q3

REPORT INFORMATION
  Report Type: 
  Country: None (occurrence: None)
  Receive Date: 20080722
  Receipt Date: 20080714
  Transmission Date: 20090109
  Serious: Yes (Hospitalization)
  Sender: FDA-Public Use
  Company Number: JP-BAYER-200811450BYL

PATIENT
  Age: 70 Year
  Sex: Male

DRUGS (6)
  1. NEXAVAR [Suspect]
     Indication: RENAL CELL CARCINOMA STAGE III
     Dosage: UNIT DOSE: 200 MG
     Route: 048
     Dates: start: 20080606, end: 20080612
  2. NEXAVAR [Suspect]
     Dosage: UNIT DOSE: 200 MG
     Route: 048
     Dates: start: 20080630, end: 20080630
  3. PREDONINE [Concomitant]
     Indication: RHEUMATOID ARTHRITIS
     Dosage: TOTAL DAILY DOSE: 5 MG  UNIT DOSE: 5 MG
     Route: 048
     Dates: start: 20070101
  4. TATSUPLAMIN [Concomitant]
     Route: 048
     Dates: start: 20070101
  5. PEON [Concomitant]
     Route: 048
     Dates: start: 20070101
  6. FAMOTIDINE [Concomitant]
     Route: 048
     Dates: start: 20070101

REACTIONS (3)
  - HYPOTENSION [None]
  - PALMAR-PLANTAR ERYTHRODYSAESTHESIA SYNDROME [None]
  - PYREXIA [None]
